FAERS Safety Report 20726294 (Version 1)
Quarter: 2022Q2

REPORT INFORMATION
  Report Type: Report from Study
  Country: US (occurrence: US)
  Receive Date: 20220419
  Receipt Date: 20220419
  Transmission Date: 20220721
  Serious: Yes (Other)
  Sender: FDA-Public Use
  Company Number: US-UCBSA-2022021472

PATIENT
  Age: 18 Year
  Sex: Male

DRUGS (6)
  1. LEVETIRACETAM [Suspect]
     Active Substance: LEVETIRACETAM
     Indication: Seizure
     Dosage: UNK
  2. LEVETIRACETAM [Suspect]
     Active Substance: LEVETIRACETAM
     Dosage: DOSE INCREASED
     Dates: start: 20190626
  3. LEVETIRACETAM [Suspect]
     Active Substance: LEVETIRACETAM
     Dosage: 1250 MILLIGRAM, 2X/DAY (BID)
     Dates: start: 20210131
  4. LEVETIRACETAM [Suspect]
     Active Substance: LEVETIRACETAM
     Dosage: 1500 MILLIGRAM, 2X/DAY (BID)
     Dates: start: 20210222
  5. LEVETIRACETAM [Suspect]
     Active Substance: LEVETIRACETAM
     Dosage: 1750 MILLIGRAM, 2X/DAY (BID)
  6. EFFEXOR [Concomitant]
     Active Substance: VENLAFAXINE HYDROCHLORIDE
     Indication: Anxiety
     Dosage: 37.5 MG
     Dates: start: 20200512

REACTIONS (7)
  - Generalised tonic-clonic seizure [Unknown]
  - Seizure [Unknown]
  - Confusional state [Unknown]
  - Anticonvulsant drug level increased [Unknown]
  - Prescribed overdose [Unknown]
  - Product dose omission issue [Unknown]
  - Treatment noncompliance [Unknown]

NARRATIVE: CASE EVENT DATE: 20170608
